FAERS Safety Report 4448285-X (Version None)
Quarter: 2004Q3

REPORT INFORMATION
  Report Type: 
  Country: None (occurrence: None)
  Receive Date: 20040910
  Receipt Date: 20040827
  Transmission Date: 20050211
  Serious: Yes (Hospitalization, Other)
  Sender: FDA-Public Use
  Company Number: 2004S1001321

PATIENT
  Age: 70 Year
  Sex: Female
  Weight: 71.2147 kg

DRUGS (5)
  1. NITROFURANTION [Suspect]
     Indication: KIDNEY INFECTION
     Dosage: 100MG, BID, ORAL
     Route: 048
     Dates: start: 20040421, end: 20040425
  2. NITROFURANTION [Suspect]
     Indication: URINARY TRACT INFECTION
     Dosage: 100MG, BID, ORAL
     Route: 048
     Dates: start: 20040421, end: 20040425
  3. PHENAZOPYRIDINE HCL TAB [Suspect]
     Indication: KIDNEY INFECTION
     Dosage: 200MG, TID, ORAL
     Route: 048
     Dates: start: 20040421
  4. PHENAZOPYRIDINE HCL TAB [Suspect]
     Indication: URINARY TRACT INFECTION
     Dosage: 200MG, TID, ORAL
     Route: 048
     Dates: start: 20040421
  5. TELMISARTAN [Concomitant]

REACTIONS (7)
  - ASTHENIA [None]
  - FEELING ABNORMAL [None]
  - FEELING JITTERY [None]
  - HEADACHE [None]
  - NAUSEA [None]
  - OEDEMA PERIPHERAL [None]
  - RASH [None]
